FAERS Safety Report 13032942 (Version 1)
Quarter: 2016Q4

REPORT INFORMATION
  Report Type: Spontaneous
  Country: US (occurrence: US)
  Receive Date: 20161215
  Receipt Date: 20161215
  Transmission Date: 20170207
  Serious: No
  Sender: FDA-Public Use
  Company Number: US-ELI_LILLY_AND_COMPANY-US201612004816

PATIENT
  Sex: Female

DRUGS (1)
  1. HUMALOG [Suspect]
     Active Substance: INSULIN LISPRO
     Indication: DIABETES MELLITUS
     Dosage: 10 U, TID BEFORE EACH MEAL
     Dates: start: 201610

REACTIONS (2)
  - Exposure during pregnancy [Not Recovered/Not Resolved]
  - Blood glucose increased [Not Recovered/Not Resolved]
